FAERS Safety Report 24287233 (Version 1)
Quarter: 2024Q3

REPORT INFORMATION
  Report Type: Spontaneous
  Country: JP (occurrence: JP)
  Receive Date: 20240905
  Receipt Date: 20240905
  Transmission Date: 20241016
  Serious: Yes (Death, Hospitalization)
  Sender: EISAI
  Company Number: JP-Eisai-202406974_LEN-EC_P_1

PATIENT
  Age: 53 Year
  Sex: Female

DRUGS (3)
  1. LENVIMA [Suspect]
     Active Substance: LENVATINIB
     Indication: Endometrial cancer
     Dosage: DOSE AND FREQUENCY UNKNOWN
     Route: 048
  2. LENVIMA [Suspect]
     Active Substance: LENVATINIB
     Route: 048
  3. KEYTRUDA [Concomitant]
     Active Substance: PEMBROLIZUMAB
     Indication: Endometrial cancer
     Dosage: DOSE AND FREQUENCY UNKNOWN
     Route: 042

REACTIONS (3)
  - Altered state of consciousness [Unknown]
  - Asthenia [Fatal]
  - Pneumatosis intestinalis [Not Recovered/Not Resolved]
